FAERS Safety Report 17620823 (Version 1)
Quarter: 2020Q2

REPORT INFORMATION
  Report Type: Spontaneous
  Country: FR (occurrence: FR)
  Receive Date: 20200403
  Receipt Date: 20200403
  Transmission Date: 20200713
  Serious: Yes (Hospitalization)
  Sender: FDA-Public Use
  Company Number: FR-ACCORD-178065

PATIENT
  Age: 75 Year
  Sex: Male
  Weight: 59 kg

DRUGS (2)
  1. PACLITAXEL ACCORD [Suspect]
     Active Substance: PACLITAXEL
     Indication: LUNG CANCER METASTATIC
     Dosage: 6 MG/ML
     Route: 042
     Dates: start: 20200204, end: 20200211
  2. CARBOPLATIN ACCORD [Suspect]
     Active Substance: CARBOPLATIN
     Indication: LUNG CANCER METASTATIC
     Dosage: 10 MG/ML
     Dates: start: 20200204, end: 20200204

REACTIONS (3)
  - Pancytopenia [Recovering/Resolving]
  - Colitis [Recovered/Resolved]
  - Septic shock [Recovered/Resolved]

NARRATIVE: CASE EVENT DATE: 20200215
